FAERS Safety Report 6700322-5 (Version None)
Quarter: 2010Q2

REPORT INFORMATION
  Report Type: 
  Country: None (occurrence: None)
  Receive Date: 20100428
  Receipt Date: 20100421
  Transmission Date: 20101027
  Serious: Yes (Other)
  Sender: FDA-Public Use
  Company Number: JP-ROCHE-671201

PATIENT
  Sex: Male

DRUGS (5)
  1. AVASTIN [Suspect]
     Indication: LARGE INTESTINE CARCINOMA
     Dosage: NOTE: DOSE IS UNCERTAIN
     Route: 041
  2. IRINOTECAN HYDROCHLORIDE [Suspect]
     Indication: LARGE INTESTINE CARCINOMA
     Route: 041
  3. FLUOROURACIL [Suspect]
     Indication: LARGE INTESTINE CARCINOMA
     Dosage: ROUTE: INTRAVENOUS BOLUS.  DOSAGE IS UNCERTAIN
     Route: 040
  4. FLUOROURACIL [Suspect]
     Dosage: ROUTE: INTRAVENOUS DRIP
     Route: 040
  5. LEUCOVORIN CALCIUM [Suspect]
     Indication: LARGE INTESTINE CARCINOMA
     Dosage: NOTE: DOSAGE IS UNCERTAIN
     Route: 041

REACTIONS (1)
  - LYMPHANGIOSIS CARCINOMATOSA [None]
